FAERS Safety Report 13288537 (Version 2)
Quarter: 2017Q2

REPORT INFORMATION
  Report Type: Spontaneous
  Country: US (occurrence: US)
  Receive Date: 20170302
  Receipt Date: 20170620
  Transmission Date: 20170830
  Serious: No
  Sender: FDA-Public Use
  Company Number: US-INCYTE CORPORATION-2017IN001257

PATIENT

DRUGS (1)
  1. JAKAFI [Suspect]
     Active Substance: RUXOLITINIB
     Indication: CHRONIC KIDNEY DISEASE
     Dosage: 15 MG, BID
     Route: 048
     Dates: start: 20170210

REACTIONS (4)
  - Off label use [Unknown]
  - Dry mouth [Not Recovered/Not Resolved]
  - Skin irritation [Not Recovered/Not Resolved]
  - Headache [Not Recovered/Not Resolved]

NARRATIVE: CASE EVENT DATE: 201702
